FAERS Safety Report 16820762 (Version 1)
Quarter: 2019Q3

REPORT INFORMATION
  Report Type: Spontaneous
  Country: US (occurrence: US)
  Receive Date: 20190918
  Receipt Date: 20190918
  Transmission Date: 20191005
  Serious: No
  Sender: FDA-Public Use
  Company Number: US-ALIMERA SCIENCES INC.-US-IL-2016-003108

PATIENT
  Age: 68 Year
  Sex: Female

DRUGS (1)
  1. ILUVIEN [Suspect]
     Active Substance: FLUOCINOLONE ACETONIDE
     Indication: DIABETIC RETINAL OEDEMA
     Dosage: 0.25 ?G, QD
     Route: 031
     Dates: start: 20160722, end: 20161214

REACTIONS (3)
  - Device dislocation [Recovered/Resolved]
  - Medical device removal [Recovered/Resolved]
  - Corneal oedema [Recovering/Resolving]

NARRATIVE: CASE EVENT DATE: 2016
